FAERS Safety Report 5215778-7 (Version None)
Quarter: 2007Q1

REPORT INFORMATION
  Report Type: 
  Country: None (occurrence: None)
  Receive Date: 20070123
  Receipt Date: 20070117
  Transmission Date: 20070707
  Serious: Yes (Hospitalization)
  Sender: FDA-Public Use
  Company Number: 2006UW19834

PATIENT
  Age: 20055 Day
  Sex: Female
  Weight: 70 kg

DRUGS (8)
  1. IRESSA [Suspect]
     Indication: RENAL CELL CARCINOMA STAGE UNSPECIFIED
     Route: 048
     Dates: start: 20060801, end: 20060831
  2. SUTENT [Suspect]
     Indication: RENAL CELL CARCINOMA STAGE UNSPECIFIED
     Route: 048
     Dates: start: 20060801, end: 20060828
  3. AMILORIDE HYDROCHLORIDE [Concomitant]
     Dosage: 5/50
     Route: 048
     Dates: start: 19990101
  4. GLIPIZIDE [Concomitant]
     Route: 048
     Dates: start: 19990101
  5. PROCARDIA [Concomitant]
     Route: 048
     Dates: start: 19990101
  6. ZOLOFT [Concomitant]
     Route: 048
     Dates: start: 19990101
  7. GLUCOTROL [Concomitant]
     Route: 048
  8. VICODIN [Concomitant]
     Dosage: 1-2 AS NEEDED

REACTIONS (1)
  - VENTRICULAR TACHYCARDIA [None]
